FAERS Safety Report 17593288 (Version 2)
Quarter: 2020Q2

REPORT INFORMATION
  Report Type: Spontaneous
  Country: JP (occurrence: JP)
  Receive Date: 20200327
  Receipt Date: 20200417
  Transmission Date: 20200713
  Serious: No
  Sender: FDA-Public Use
  Company Number: JP-UCBSA-2019056191

PATIENT
  Age: 6 Year
  Sex: Female

DRUGS (25)
  1. E KEPPRA [Suspect]
     Active Substance: LEVETIRACETAM
     Dosage: 400MG DAILY
     Route: 048
     Dates: start: 20191011, end: 20200109
  2. ADCIRCA [Suspect]
     Active Substance: TADALAFIL
     Dosage: 7.2 MILLIGRAM, ONCE DAILY (QD)
     Route: 048
     Dates: start: 20150422, end: 20160629
  3. TERNELIN [Concomitant]
     Active Substance: TIZANIDINE
     Indication: PRODUCT USED FOR UNKNOWN INDICATION
     Route: 048
     Dates: start: 20190111, end: 20200216
  4. DANTRIUM [Concomitant]
     Active Substance: DANTROLENE SODIUM
     Indication: PRODUCT USED FOR UNKNOWN INDICATION
     Route: 048
     Dates: start: 20180406
  5. ASPIRIN. [Concomitant]
     Active Substance: ASPIRIN
     Indication: PRODUCT USED FOR UNKNOWN INDICATION
     Route: 048
     Dates: start: 20160209
  6. ROZEREM [Concomitant]
     Active Substance: RAMELTEON
     Indication: PRODUCT USED FOR UNKNOWN INDICATION
  7. E KEPPRA [Suspect]
     Active Substance: LEVETIRACETAM
     Dosage: 300MG DAILY
     Route: 048
     Dates: start: 20190815, end: 20191010
  8. TERNELIN [Concomitant]
     Active Substance: TIZANIDINE
     Dosage: 3 MILLIGRAM, ONCE DAILY (QD)
     Route: 048
     Dates: start: 20200217
  9. PHENOBAL [Concomitant]
     Active Substance: PHENOBARBITAL
     Indication: PRODUCT USED FOR UNKNOWN INDICATION
     Route: 048
     Dates: start: 20160722, end: 20200216
  10. CERCINE [Concomitant]
     Active Substance: DIAZEPAM
     Indication: PRODUCT USED FOR UNKNOWN INDICATION
     Route: 048
     Dates: start: 20170414
  11. TRICLORYL [Concomitant]
     Active Substance: TRICLOFOS SODIUM
     Indication: PRODUCT USED FOR UNKNOWN INDICATION
     Route: 048
     Dates: start: 20180713
  12. ALDACTONE A [Concomitant]
     Active Substance: SPIRONOLACTONE
     Indication: PRODUCT USED FOR UNKNOWN INDICATION
  13. FUROSEMIDE. [Concomitant]
     Active Substance: FUROSEMIDE
     Indication: PRODUCT USED FOR UNKNOWN INDICATION
  14. E KEPPRA [Suspect]
     Active Substance: LEVETIRACETAM
     Dosage: 600MG DAILY
     Route: 048
     Dates: start: 20200110, end: 20200216
  15. PULSMARIN A [Concomitant]
     Active Substance: AMBROXOL HYDROCHLORIDE
     Indication: PRODUCT USED FOR UNKNOWN INDICATION
     Route: 048
     Dates: start: 20180830
  16. ROZEREM [Concomitant]
     Active Substance: RAMELTEON
     Route: 048
     Dates: start: 20160722
  17. E KEPPRA [Suspect]
     Active Substance: LEVETIRACETAM
     Indication: EPILEPSY
     Dosage: 200MG DAILY
     Route: 048
     Dates: start: 20190712, end: 20190814
  18. ADCIRCA [Suspect]
     Active Substance: TADALAFIL
     Dosage: 9 MILLIGRAM, ONCE DAILY (QD)
     Route: 048
     Dates: start: 20160630
  19. E KEPPRA [Suspect]
     Active Substance: LEVETIRACETAM
     Dosage: 300MG DAILY
     Route: 048
     Dates: start: 20200217
  20. MAGNESIUM OXIDE. [Concomitant]
     Active Substance: MAGNESIUM OXIDE
     Indication: PRODUCT USED FOR UNKNOWN INDICATION
     Route: 048
     Dates: start: 20161216
  21. ALDACTONE A [Concomitant]
     Active Substance: SPIRONOLACTONE
     Route: 048
     Dates: start: 20160108
  22. FUROSEMIDE. [Concomitant]
     Active Substance: FUROSEMIDE
     Route: 048
     Dates: start: 20160108
  23. ADCIRCA [Suspect]
     Active Substance: TADALAFIL
     Indication: PRODUCT USED FOR UNKNOWN INDICATION
     Dosage: 3.6 MILLIGRAM, ONCE DAILY (QD)
     Route: 048
     Dates: start: 20150327, end: 20150421
  24. PHENOBAL [Concomitant]
     Active Substance: PHENOBARBITAL
     Dosage: 40 MILLIGRAM, ONCE DAILY (QD)
     Route: 048
     Dates: start: 20200217
  25. CARBOCISTEINE LYSINE [Concomitant]
     Active Substance: CARBOCYSTEINE LYSINE
     Indication: PRODUCT USED FOR UNKNOWN INDICATION
     Route: 048
     Dates: start: 20180830

REACTIONS (2)
  - Erythema [Unknown]
  - Off label use [Unknown]

NARRATIVE: CASE EVENT DATE: 20190712
